FAERS Safety Report 11803840 (Version 1)
Quarter: 2015Q4

REPORT INFORMATION
  Report Type: Spontaneous
  Country: GB (occurrence: GB)
  Receive Date: 20151204
  Receipt Date: 20151204
  Transmission Date: 20160305
  Serious: Yes (Death, Other)
  Sender: FDA-Public Use
  Company Number: PHFR2015GB009283

PATIENT

DRUGS (1)
  1. PAZOPANIB [Suspect]
     Active Substance: PAZOPANIB
     Indication: RENAL CELL CARCINOMA
     Route: 065
     Dates: end: 201505

REACTIONS (12)
  - Renal mass [Unknown]
  - Embolism arterial [Unknown]
  - Pancreatic mass [Unknown]
  - Malignant neoplasm progression [Fatal]
  - Metastases to lymph nodes [Unknown]
  - Adrenal mass [Unknown]
  - Hepatic lesion [Unknown]
  - Nephrolithiasis [Unknown]
  - Renal cyst [Unknown]
  - Pulmonary mass [Unknown]
  - Metastases to lung [Unknown]
  - Metastases to liver [Unknown]

NARRATIVE: CASE EVENT DATE: 20150309
